FAERS Safety Report 9564091 (Version 4)
Quarter: 2014Q2

REPORT INFORMATION
  Report Type: Spontaneous
  Country: US (occurrence: US)
  Receive Date: 20130929
  Receipt Date: 20140407
  Transmission Date: 20141212
  Serious: Yes (Hospitalization)
  Sender: FDA-Public Use
  Company Number: PHEH2013US019917

PATIENT
  Age: 34 Year
  Sex: Female

DRUGS (1)
  1. GILENYA [Suspect]
     Indication: MULTIPLE SCLEROSIS
     Dosage: 0.5 MG, QD
     Route: 048
     Dates: start: 20130619

REACTIONS (6)
  - Cerebrovascular accident [Recovered/Resolved]
  - Paralysis [Not Recovered/Not Resolved]
  - Muscular weakness [Unknown]
  - Venous angioma of brain [Unknown]
  - Paraparesis [Unknown]
  - Venous stenosis [Unknown]
